FAERS Safety Report 8323244-5 (Version None)
Quarter: 2012Q2

REPORT INFORMATION
  Report Type: 
  Country: None (occurrence: None)
  Receive Date: 20120430
  Receipt Date: 20120420
  Transmission Date: 20120825
  Serious: Yes (Hospitalization)
  Sender: FDA-Public Use
  Company Number: PHHY2012JP030834

PATIENT
  Age: 37 Year
  Sex: Male

DRUGS (4)
  1. METENOLONE ACETATE [Suspect]
     Indication: APLASTIC ANAEMIA
     Dosage: UNK UKN, UNK
  2. PREDNISOLONE [Suspect]
     Dosage: UNK UKN, UNK
     Route: 048
  3. CYCLOSPORINE [Suspect]
     Indication: APLASTIC ANAEMIA
  4. ANTI-THYMOCYTE GLOBULIN EQUINE NOS [Suspect]
     Indication: APLASTIC ANAEMIA
     Dosage: UNK UKN, UNK

REACTIONS (7)
  - AORTIC ANEURYSM RUPTURE [None]
  - FEMORAL ARTERY OCCLUSION [None]
  - AORTIC ANEURYSM [None]
  - ARTERIOSCLEROSIS [None]
  - ABDOMINAL PAIN LOWER [None]
  - PERIPHERAL ARTERIAL OCCLUSIVE DISEASE [None]
  - INTERMITTENT CLAUDICATION [None]
